FAERS Safety Report 24202162 (Version 1)
Quarter: 2024Q3

REPORT INFORMATION
  Report Type: Spontaneous
  Country: CN (occurrence: CN)
  Receive Date: 20240812
  Receipt Date: 20240812
  Transmission Date: 20241017
  Serious: Yes (Other)
  Sender: BEIGENE
  Company Number: CN-BEIGENE-BGN-2024-012215

PATIENT

DRUGS (3)
  1. TISLELIZUMAB [Suspect]
     Active Substance: TISLELIZUMAB
     Indication: Pulmonary mass
     Dosage: 200 MILLIGRAM D1
     Route: 041
     Dates: start: 20240723
  2. CISPLATIN [Suspect]
     Active Substance: CISPLATIN
     Indication: Pulmonary mass
     Dosage: 30 MILLIGRAM D1-3
     Route: 041
     Dates: start: 20240723
  3. PACLITAXEL [Suspect]
     Active Substance: PACLITAXEL
     Indication: Pulmonary mass
     Dosage: 240 MILLIGRAM D1
     Route: 041
     Dates: start: 20240723

REACTIONS (2)
  - White blood cell count decreased [Recovering/Resolving]
  - Neutrophil count decreased [Recovering/Resolving]

NARRATIVE: CASE EVENT DATE: 20240729
